FAERS Safety Report 22150653 (Version 2)
Quarter: 2023Q2

REPORT INFORMATION
  Report Type: Spontaneous
  Country: JP (occurrence: JP)
  Receive Date: 20230329
  Receipt Date: 20230403
  Transmission Date: 20230722
  Serious: Yes (Other)
  Sender: FDA-Public Use
  Company Number: None

PATIENT

DRUGS (11)
  1. NUCALA [Suspect]
     Active Substance: MEPOLIZUMAB
     Indication: Eosinophilic granulomatosis with polyangiitis
     Dosage: 300 MG EVERY 4 WEEKS
     Route: 058
     Dates: start: 20210805
  2. SULFAMETHOXAZOLE\TRIMETHOPRIM [Concomitant]
     Active Substance: SULFAMETHOXAZOLE\TRIMETHOPRIM
  3. LANSOPRAZOLE [Concomitant]
     Active Substance: LANSOPRAZOLE
  4. BONALON [Concomitant]
     Active Substance: ALENDRONATE SODIUM
  5. AMLODIPINE BESYLATE [Concomitant]
     Active Substance: AMLODIPINE BESYLATE
  6. ATORVASTATIN CALCIUM [Concomitant]
     Active Substance: ATORVASTATIN CALCIUM
  7. METHYLCOBALAMIN [Concomitant]
     Active Substance: METHYLCOBALAMIN
  8. LINAGLIPTIN [Concomitant]
     Active Substance: LINAGLIPTIN
  9. PRANLUKAST [Concomitant]
     Active Substance: PRANLUKAST
  10. NASONEX [Concomitant]
     Active Substance: MOMETASONE FUROATE
  11. PULMICORT TURBUHALER [Concomitant]
     Active Substance: BUDESONIDE

REACTIONS (2)
  - Eosinophilic granulomatosis with polyangiitis [Not Recovered/Not Resolved]
  - Condition aggravated [Not Recovered/Not Resolved]

NARRATIVE: CASE EVENT DATE: 20230323
